FAERS Safety Report 7200666-7 (Version None)
Quarter: 2010Q4

REPORT INFORMATION
  Report Type: 
  Country: None (occurrence: None)
  Receive Date: 20101228
  Receipt Date: 20101226
  Transmission Date: 20110411
  Serious: Yes (Other)
  Sender: FDA-Public Use
  Company Number: IT-PFIZER INC-2010179751

PATIENT
  Age: 47 Year
  Sex: Male

DRUGS (2)
  1. ZOLOFT [Suspect]
     Indication: DEPRESSION
     Dosage: 50 MG, 1X/DAY
     Route: 048
     Dates: start: 20100201
  2. MAALOX [Concomitant]

REACTIONS (5)
  - ABDOMINAL PAIN UPPER [None]
  - BLEPHARITIS [None]
  - ERYTHEMA [None]
  - EYELID OEDEMA [None]
  - FEELING HOT [None]
